FAERS Safety Report 6978948-3 (Version None)
Quarter: 2010Q3

REPORT INFORMATION
  Report Type: 
  Country: None (occurrence: None)
  Receive Date: 20100913
  Receipt Date: 20100908
  Transmission Date: 20110219
  Serious: Yes (Disabling)
  Sender: FDA-Public Use
  Company Number: GB-MERCK-1009GBR00029

PATIENT
  Age: 75 Year
  Sex: Female

DRUGS (11)
  1. HYZAAR [Suspect]
     Indication: HYPERTENSION
     Route: 048
     Dates: start: 20060201, end: 20100701
  2. ALENDRONATE SODIUM [Concomitant]
     Route: 065
  3. ASPIRIN [Concomitant]
     Route: 065
  4. ATENOLOL [Concomitant]
     Route: 065
  5. BECLOMETHASONE DIPROPIONATE AND FORMOTEROL FUMARATE [Concomitant]
     Route: 055
  6. IBUPROFEN [Concomitant]
     Route: 065
  7. ACETAMINOPHEN AND BUCLIZINE HYDROCHLORIDE AND CODEINE PHOSPHATE [Concomitant]
     Route: 065
  8. QUININE SULFATE [Concomitant]
     Route: 065
  9. ALBUTEROL SULFATE [Concomitant]
     Route: 055
  10. ALBUTEROL SULFATE [Concomitant]
     Route: 055
  11. ALBUTEROL SULFATE [Concomitant]
     Route: 055

REACTIONS (1)
  - RESTLESS LEGS SYNDROME [None]
